FAERS Safety Report 6266328-8 (Version None)
Quarter: 2009Q3

REPORT INFORMATION
  Report Type: 
  Country: None (occurrence: None)
  Receive Date: 20090713
  Receipt Date: 20090708
  Transmission Date: 20100115
  Serious: Yes (Death, Hospitalization, Other)
  Sender: FDA-Public Use
  Company Number: PHHY2009JP28207

PATIENT
  Age: 54 Year
  Sex: Male

DRUGS (4)
  1. CYCLOSPORINE [Suspect]
     Indication: RENAL TRANSPLANT
     Dosage: UNK
  2. MYCOPHENOLATE MOFETIL [Concomitant]
     Indication: RENAL TRANSPLANT
     Dosage: UNK
     Dates: start: 20061201
  3. METHYLPREDNISOLONE [Concomitant]
     Indication: RENAL TRANSPLANT
     Dosage: UNK
     Dates: start: 20061201
  4. SORAFENIB TOSILATE [Concomitant]
     Indication: RENAL CANCER
     Dosage: UNK
     Dates: start: 20080401, end: 20081201

REACTIONS (9)
  - ABDOMINAL ABSCESS [None]
  - DIARRHOEA [None]
  - IMMUNOSUPPRESSANT DRUG LEVEL INCREASED [None]
  - INFLAMMATION [None]
  - INTESTINAL PERFORATION [None]
  - METASTASES TO BONE [None]
  - RENAL CANCER RECURRENT [None]
  - RENAL IMPAIRMENT [None]
  - SEPSIS [None]
